FAERS Safety Report 5876462-X (Version None)
Quarter: 2008Q3

REPORT INFORMATION
  Report Type: 
  Country: None (occurrence: None)
  Receive Date: 20080910
  Receipt Date: 20080904
  Transmission Date: 20090109
  Serious: Yes (Congenital Anomaly)
  Sender: FDA-Public Use
  Company Number: A0687293A

PATIENT
  Sex: Male

DRUGS (2)
  1. PAXIL [Suspect]
     Indication: PANIC ATTACK
     Dosage: 40MG PER DAY
     Dates: start: 19970101
  2. VITAMIN TAB [Concomitant]
     Dates: start: 20000907

REACTIONS (6)
  - ABORTION INDUCED [None]
  - DRUG EXPOSURE DURING PREGNANCY [None]
  - FALLOT'S TETRALOGY [None]
  - LUNG DISORDER [None]
  - TRUNCUS ARTERIOSUS PERSISTENT [None]
  - VENTRICULAR SEPTAL DEFECT [None]
